FAERS Safety Report 15265157 (Version 1)
Quarter: 2018Q3

REPORT INFORMATION
  Report Type: Other
  Country: JP (occurrence: JP)
  Receive Date: 20180810
  Receipt Date: 20180810
  Transmission Date: 20181010
  Serious: Yes (Other)
  Sender: FDA-Public Use
  Company Number: JP-ACTELION-A-CH2018-177131

PATIENT
  Age: 14 Year
  Sex: Female

DRUGS (1)
  1. EPOPROSTENOL SODIUM. [Suspect]
     Active Substance: EPOPROSTENOL SODIUM
     Indication: PULMONARY ARTERIAL HYPERTENSION
     Route: 042

REACTIONS (8)
  - Right ventricle outflow tract obstruction [Recovering/Resolving]
  - Melaena [Recovering/Resolving]
  - Circulatory collapse [Recovering/Resolving]
  - Diaphragmatic disorder [Unknown]
  - Lung transplant [Unknown]
  - Gastric ulcer haemorrhage [Recovering/Resolving]
  - Transfusion [Unknown]
  - Hypoxia [Unknown]
